FAERS Safety Report 25574980 (Version 2)
Quarter: 2025Q3

REPORT INFORMATION
  Report Type: Spontaneous
  Country: RU (occurrence: RU)
  Receive Date: 20250718
  Receipt Date: 20250718
  Transmission Date: 20251020
  Serious: Yes (Hospitalization, Other)
  Sender: EXELIXIS
  Company Number: RU-BRISTOL-MYERS SQUIBB COMPANY-2025-098636

PATIENT

DRUGS (3)
  1. CABOMETYX [Suspect]
     Active Substance: CABOZANTINIB S-MALATE
     Indication: Product used for unknown indication
     Dosage: 40 MG, QD
     Dates: start: 202412
  2. NIVOLUMAB [Suspect]
     Active Substance: NIVOLUMAB
     Indication: Metastatic renal cell carcinoma
     Dosage: UNK UNK, Q4WEEKS
     Dates: start: 202412
  3. NIVOLUMAB [Suspect]
     Active Substance: NIVOLUMAB
     Dates: start: 20250621

REACTIONS (5)
  - Tumour pain [Unknown]
  - Malignant neoplasm progression [Unknown]
  - Tumour haemorrhage [Unknown]
  - Drug ineffective [Unknown]
  - Product supply issue [Unknown]
